FAERS Safety Report 11496162 (Version 1)
Quarter: 2015Q3

REPORT INFORMATION
  Report Type: Spontaneous
  Country: GB (occurrence: GB)
  Receive Date: 20150911
  Receipt Date: 20150911
  Transmission Date: 20151125
  Serious: Yes (Other)
  Sender: FDA-Public Use
  Company Number: GB-IPCA LABORATORIES LIMITED-IPC201509-000588

PATIENT
  Age: 69 Year
  Sex: Male

DRUGS (2)
  1. CEFALEXIN [Concomitant]
     Active Substance: CEPHALEXIN
     Indication: URINARY TRACT INFECTION
  2. WARFARIN [Suspect]
     Active Substance: WARFARIN

REACTIONS (3)
  - Skin necrosis [Not Recovered/Not Resolved]
  - International normalised ratio increased [Unknown]
  - Calciphylaxis [Not Recovered/Not Resolved]
